FAERS Safety Report 4536813-5 (Version None)
Quarter: 2004Q4

REPORT INFORMATION
  Report Type: 
  Country: None (occurrence: None)
  Receive Date: 20041220
  Receipt Date: 20041206
  Transmission Date: 20050328
  Serious: Yes (Hospitalization)
  Sender: FDA-Public Use
  Company Number: 2004GB02954

PATIENT
  Age: 48 Year
  Sex: Female
  Weight: 92.5 kg

DRUGS (2)
  1. ATENOLOL [Suspect]
     Indication: BLOOD PRESSURE INCREASED
     Dosage: 100 MG QAM PO
     Route: 048
     Dates: end: 20041011
  2. CRESTOR [Concomitant]

REACTIONS (1)
  - INTERMITTENT CLAUDICATION [None]
